FAERS Safety Report 4978072-5 (Version None)
Quarter: 2006Q2

REPORT INFORMATION
  Report Type: 
  Country: None (occurrence: None)
  Receive Date: 20060417
  Receipt Date: 20060407
  Transmission Date: 20061013
  Serious: Yes (Disabling, Other)
  Sender: FDA-Public Use
  Company Number: 2006049866

PATIENT
  Weight: 58.0604 kg

DRUGS (7)
  1. NORVASC [Suspect]
     Indication: HYPERTENSION
     Dosage: 2.5 MG
     Dates: start: 19940101
  2. LIPITOR [Suspect]
     Indication: BLOOD CHOLESTEROL INCREASED
     Dosage: 5 MG, 10 MG
     Dates: start: 19930101
  3. LIPITOR [Suspect]
     Indication: BLOOD TRIGLYCERIDES ABNORMAL
     Dosage: 5 MG, 10 MG
     Dates: start: 19930101
  4. LIPITOR [Suspect]
     Indication: BLOOD CHOLESTEROL INCREASED
     Dosage: 5 MG, 10 MG
     Dates: start: 19970101
  5. LIPITOR [Suspect]
     Indication: BLOOD TRIGLYCERIDES ABNORMAL
     Dosage: 5 MG, 10 MG
     Dates: start: 19970101
  6. CENTRUM SILVER (ASCORBIC ACID, CALCIUM, MINERALS NOS, RETINOL, TOCOPHE [Concomitant]
  7. VITAMIN E [Concomitant]

REACTIONS (9)
  - CARTILAGE INJURY [None]
  - CONDITION AGGRAVATED [None]
  - DIFFICULTY IN WALKING [None]
  - DRUG EFFECT DECREASED [None]
  - ECONOMIC PROBLEM [None]
  - EXOSTOSIS [None]
  - HYPERTENSION [None]
  - KNEE OPERATION [None]
  - OSTEOARTHRITIS [None]
